FAERS Safety Report 13957543 (Version 1)
Quarter: 2017Q3

REPORT INFORMATION
  Report Type: Spontaneous
  Country: US (occurrence: US)
  Receive Date: 20170911
  Receipt Date: 20170911
  Transmission Date: 20171128
  Serious: No
  Sender: FDA-Public Use
  Company Number: US-ROCHE-1130761

PATIENT
  Sex: Female

DRUGS (17)
  1. SULFADIAZINE. [Concomitant]
     Active Substance: SULFADIAZINE
     Indication: RASH
     Route: 065
  2. HUMIRA [Concomitant]
     Active Substance: ADALIMUMAB
  3. RITUXAN [Suspect]
     Active Substance: RITUXIMAB
     Indication: RHEUMATOID ARTHRITIS
     Dosage: EVERY 6- 12 MONTHS
     Route: 042
  4. COUMADIN [Concomitant]
     Active Substance: WARFARIN SODIUM
     Route: 065
  5. POTASSIUM SUPPLEMENT NOS [Concomitant]
     Route: 065
  6. NEXIUM [Concomitant]
     Active Substance: ESOMEPRAZOLE MAGNESIUM
     Route: 065
  7. PREDNISONE. [Concomitant]
     Active Substance: PREDNISONE
     Route: 058
  8. LEUCOVORIN. [Concomitant]
     Active Substance: LEUCOVORIN
     Route: 065
  9. TICLOPIDINE [Concomitant]
     Active Substance: TICLOPIDINE
     Route: 065
  10. ALLOPURINOL. [Concomitant]
     Active Substance: ALLOPURINOL
     Route: 065
  11. PRAVACHOL [Concomitant]
     Active Substance: PRAVASTATIN SODIUM
     Route: 065
  12. NEURONTIN [Concomitant]
     Active Substance: GABAPENTIN
     Route: 065
  13. TORSEMIDE. [Concomitant]
     Active Substance: TORSEMIDE
     Route: 065
  14. LISINOPRIL. [Concomitant]
     Active Substance: LISINOPRIL
     Route: 065
  15. OXYCODONE [Concomitant]
     Active Substance: OXYCODONE
     Dosage: 4 TABLETS DAILY AS NEEDED
     Route: 065
  16. FENTANYL TRANSDERMAL SYSTEM [Concomitant]
     Active Substance: FENTANYL
     Route: 065
  17. METHOTREXATE. [Concomitant]
     Active Substance: METHOTREXATE

REACTIONS (3)
  - Pain [Unknown]
  - Swelling [Unknown]
  - Musculoskeletal stiffness [Unknown]
